FAERS Safety Report 7218066-2 (Version None)
Quarter: 2011Q1

REPORT INFORMATION
  Report Type: 
  Country: None (occurrence: None)
  Receive Date: 20110110
  Receipt Date: 20110105
  Transmission Date: 20110831
  Serious: Yes (Other)
  Sender: FDA-Public Use
  Company Number: US-BAXTER-2011BH000211

PATIENT

DRUGS (15)
  1. PANCURONIUM [Concomitant]
     Indication: HYPOTONIA
     Route: 065
  2. ALBUMIN (HUMAN) [Concomitant]
     Indication: CARDIAC OPERATION
     Route: 065
  3. CALCIUM GLUCONATE [Concomitant]
     Indication: CARDIAC OPERATION
     Route: 040
  4. ELECTROLYTE SOLUTIONS [Concomitant]
     Indication: CARDIAC OPERATION
     Route: 065
  5. PHENTOLAMINE MESYLATE [Concomitant]
     Indication: CARDIAC OPERATION
     Route: 065
  6. PROTAMINE SULFATE [Concomitant]
     Indication: HEPARIN NEUTRALISATION THERAPY
     Route: 065
  7. KETAMINE [Concomitant]
     Indication: INDUCTION OF ANAESTHESIA
     Route: 042
  8. FENTANYL [Concomitant]
     Indication: ANALGESIC THERAPY
     Route: 065
  9. DOPAMINE [Concomitant]
     Indication: CARDIAC OPERATION
     Route: 042
  10. MIDAZOLAM HCL [Concomitant]
     Indication: INDUCTION OF ANAESTHESIA
     Route: 042
  11. ISOLYTE S [Concomitant]
     Indication: CARDIAC OPERATION
     Route: 065
  12. HEPARIN [Suspect]
     Indication: CARDIAC OPERATION
     Route: 065
  13. MANNITOL [Concomitant]
     Indication: CARDIAC OPERATION
     Route: 065
  14. RED BLOOD CELLS, CONCENTRATED [Concomitant]
     Indication: HAEMATOCRIT ABNORMAL
     Route: 065
  15. HEPARIN [Suspect]
     Dosage: DOSE UNIT:UNITS PER KILOGRAM
     Route: 065

REACTIONS (2)
  - HAEMORRHAGE INTRACRANIAL [None]
  - CONVULSION [None]
